FAERS Safety Report 8480350-2 (Version None)
Quarter: 2012Q3

REPORT INFORMATION
  Report Type: 
  Country: None (occurrence: None)
  Receive Date: 20120701
  Receipt Date: 20120521
  Transmission Date: 20120928
  Serious: Yes (Hospitalization)
  Sender: FDA-Public Use
  Company Number: ES-ELI_LILLY_AND_COMPANY-ES201206008580

PATIENT
  Age: 25 Year
  Sex: Female

DRUGS (6)
  1. LORAZEPAM [Concomitant]
     Dosage: UNK
  2. OLANZAPINE [Suspect]
  3. ZYPREXA [Suspect]
     Dosage: UNK
     Route: 048
  4. RISPERDAL CONSTA [Concomitant]
  5. DEPAKENE [Concomitant]
     Dosage: UNK
     Dates: start: 20090101
  6. ABILIFY [Concomitant]
     Dosage: UNK
     Dates: start: 20090101

REACTIONS (6)
  - FATIGUE [None]
  - WEIGHT INCREASED [None]
  - SOMNOLENCE [None]
  - INJECTION SITE PAIN [None]
  - HOSPITALISATION [None]
  - DEPRESSED MOOD [None]
